FAERS Safety Report 18171991 (Version 3)
Quarter: 2020Q3

REPORT INFORMATION
  Report Type: Report from Study
  Country: CN (occurrence: CN)
  Receive Date: 20200819
  Receipt Date: 20200902
  Transmission Date: 20201103
  Serious: Yes (Other)
  Sender: FDA-Public Use
  Company Number: CN-PFIZER INC-2020316971

PATIENT
  Age: 45 Year
  Sex: Female
  Weight: 52 kg

DRUGS (6)
  1. MOXIFLOXACIN HYDROCHLORIDE AND SODIUM CHLORIDE [Concomitant]
     Indication: PNEUMONIA
     Dosage: 0.4 G, 1X/DAY
     Route: 041
     Dates: start: 20200727, end: 20200728
  2. LORLATINIB [Suspect]
     Active Substance: LORLATINIB
     Indication: NON-SMALL CELL LUNG CANCER
     Dosage: 100 MG, 1X/DAY
     Route: 048
     Dates: start: 20200724, end: 20200805
  3. ROSUVASTATIN CALCIUM. [Concomitant]
     Active Substance: ROSUVASTATIN CALCIUM
     Indication: HYPERCHOLESTEROLAEMIA
     Dosage: 10 MG, 1X/DAY, TAKEN IRREGULARLY
     Route: 048
     Dates: start: 20200727, end: 20200813
  4. MOXIFLOXACIN HYDROCHLORIDE AND SODIUM CHLORIDE [Concomitant]
     Indication: ANTI-INFECTIVE THERAPY
  5. POTASSIUM CHLORIDE. [Concomitant]
     Active Substance: POTASSIUM CHLORIDE
     Indication: NUTRITIONAL SUPPLEMENTATION
     Dosage: 5 ML, 1X/DAY
     Route: 041
     Dates: start: 20200727, end: 20200727
  6. ROSUVASTATIN CALCIUM. [Concomitant]
     Active Substance: ROSUVASTATIN CALCIUM
     Indication: LIPIDS INCREASED

REACTIONS (1)
  - Mental disorder [Recovering/Resolving]

NARRATIVE: CASE EVENT DATE: 20200728
